FAERS Safety Report 8485766-6 (Version None)
Quarter: 2012Q3

REPORT INFORMATION
  Report Type: 
  Country: None (occurrence: None)
  Receive Date: 20120703
  Receipt Date: 20120625
  Transmission Date: 20120928
  Serious: Yes (Disabling, Other)
  Sender: FDA-Public Use
  Company Number: US-ABBOTT-12P-163-0934884-00

PATIENT
  Sex: Male

DRUGS (3)
  1. LUPRON DEPOT [Suspect]
     Route: 050
     Dates: start: 20100901
  2. AR520 [Suspect]
     Indication: HORMONE THERAPY
  3. LUPRON DEPOT [Suspect]
     Indication: PROSTATE CANCER
     Route: 050
     Dates: start: 20100701, end: 20101201

REACTIONS (30)
  - DYSSTASIA [None]
  - FEELING HOT [None]
  - LIBIDO DECREASED [None]
  - SLEEP DISORDER [None]
  - GENERAL PHYSICAL HEALTH DETERIORATION [None]
  - BLOOD TESTOSTERONE DECREASED [None]
  - DISTURBANCE IN ATTENTION [None]
  - BREAST ENLARGEMENT [None]
  - MEMORY IMPAIRMENT [None]
  - ERECTILE DYSFUNCTION [None]
  - QUALITY OF LIFE DECREASED [None]
  - MOOD SWINGS [None]
  - ASTHENIA [None]
  - FEELING ABNORMAL [None]
  - UNEVALUABLE EVENT [None]
  - DIZZINESS [None]
  - ABASIA [None]
  - MUSCLE ATROPHY [None]
  - MENTAL IMPAIRMENT [None]
  - PROSTATIC SPECIFIC ANTIGEN ABNORMAL [None]
  - HOT FLUSH [None]
  - NIPPLE PAIN [None]
  - GAIT DISTURBANCE [None]
  - PANIC ATTACK [None]
  - SYNCOPE [None]
  - RESTLESS LEGS SYNDROME [None]
  - ANGER [None]
  - POLYGLANDULAR DISORDER [None]
  - DEPRESSION [None]
  - FATIGUE [None]
